FAERS Safety Report 18647993 (Version 1)
Quarter: 2020Q4

REPORT INFORMATION
  Report Type: Spontaneous
  Country: US (occurrence: US)
  Receive Date: 20201221
  Receipt Date: 20201221
  Transmission Date: 20210114
  Serious: Yes (Disabling)
  Sender: FDA-Public Use
  Company Number: None

PATIENT
  Age: 51 Year
  Sex: Female
  Weight: 51.75 kg

DRUGS (7)
  1. OCREVUS [Suspect]
     Active Substance: OCRELIZUMAB
     Indication: MULTIPLE SCLEROSIS
     Dates: start: 20191208, end: 20200615
  2. VITAMIN D [Concomitant]
     Active Substance: VITAMIN D NOS
  3. AMITRIPTYLINE [Concomitant]
     Active Substance: AMITRIPTYLINE
  4. PROBIOTICS [Concomitant]
     Active Substance: PROBIOTICS NOS
  5. AMPYRA [Concomitant]
     Active Substance: DALFAMPRIDINE
  6. BIOTIN [Concomitant]
     Active Substance: BIOTIN
  7. CRANBERRY. [Concomitant]
     Active Substance: CRANBERRY

REACTIONS (5)
  - Pain in extremity [None]
  - Skin haemorrhage [None]
  - Fall [None]
  - Psoriasis [None]
  - Gait disturbance [None]

NARRATIVE: CASE EVENT DATE: 20191220
